FAERS Safety Report 6538712-6 (Version None)
Quarter: 2010Q1

REPORT INFORMATION
  Report Type: 
  Country: None (occurrence: None)
  Receive Date: 20100113
  Receipt Date: 20100113
  Transmission Date: 20100710
  Serious: Yes (Life-Threatening, Hospitalization)
  Sender: FDA-Public Use
  Company Number: None

PATIENT
  Age: 37 Year
  Sex: Female

DRUGS (2)
  1. HALOTHANE [Suspect]
     Indication: ANAESTHESIA
     Dosage: INTRATRACHEAL 039
     Route: 039
     Dates: start: 19990109
  2. HALOTHANE [Suspect]
     Indication: MYOMECTOMY
     Dosage: INTRATRACHEAL 039
     Route: 039
     Dates: start: 19990109

REACTIONS (6)
  - ABDOMINAL PAIN [None]
  - ARTHRALGIA [None]
  - COAGULOPATHY [None]
  - JAUNDICE [None]
  - LIVER TRANSPLANT [None]
  - MENTAL STATUS CHANGES [None]
